FAERS Safety Report 7386477-0 (Version None)
Quarter: 2011Q1

REPORT INFORMATION
  Report Type: 
  Country: None (occurrence: None)
  Receive Date: 20110331
  Receipt Date: 20110317
  Transmission Date: 20110831
  Serious: Yes (Other)
  Sender: FDA-Public Use
  Company Number: JP-JNJFOC-20110105645

PATIENT
  Sex: Female
  Weight: 43 kg

DRUGS (9)
  1. ENTERONON [Concomitant]
     Indication: PROPHYLAXIS
     Route: 048
  2. REMICADE [Suspect]
     Indication: COLITIS ULCERATIVE
     Route: 042
  3. REMICADE [Suspect]
     Route: 042
  4. REMICADE [Suspect]
     Route: 042
  5. PREDONINE [Concomitant]
     Indication: PROPHYLAXIS
     Dosage: 1.5 TABS DAILY
     Route: 048
  6. ADALAT [Concomitant]
     Indication: HYPERTENSION
     Route: 048
  7. CEREKINON [Concomitant]
     Indication: INTESTINAL FUNCTIONAL DISORDER
     Route: 048
  8. ACINON [Concomitant]
     Indication: PROPHYLAXIS
     Route: 048
  9. REMICADE [Suspect]
     Dosage: TOTAL 4 DOSES
     Route: 042

REACTIONS (1)
  - PNEUMONIA [None]
